FAERS Safety Report 18440846 (Version 1)
Quarter: 2020Q4

REPORT INFORMATION
  Report Type: Spontaneous
  Country: US (occurrence: US)
  Receive Date: 20201029
  Receipt Date: 20201029
  Transmission Date: 20210114
  Serious: Yes (Other)
  Sender: FDA-Public Use
  Company Number: None

PATIENT
  Age: 72 Year
  Sex: Female
  Weight: 72.3 kg

DRUGS (13)
  1. LEXAPRO [Concomitant]
     Active Substance: ESCITALOPRAM OXALATE
  2. SYNTHROID [Concomitant]
     Active Substance: LEVOTHYROXINE SODIUM
  3. METAMUCIL [Concomitant]
     Active Substance: PLANTAGO SEED
  4. CAYENNE [Concomitant]
     Active Substance: CAPSICUM\HERBALS
  5. ACYCLOVIR. [Concomitant]
     Active Substance: ACYCLOVIR
  6. CRANBERRY. [Concomitant]
     Active Substance: CRANBERRY
  7. ALOE VERA [Concomitant]
     Active Substance: ALOE VERA LEAF
  8. CALCIUM AND VITAMIN D [Concomitant]
     Active Substance: CALCIUM\VITAMIN D
  9. OMEPRAZOLE. [Concomitant]
     Active Substance: OMEPRAZOLE
  10. BLACK COHOSH [Concomitant]
     Active Substance: BLACK COHOSH
  11. DILTIAZEM. [Concomitant]
     Active Substance: DILTIAZEM
  12. CAPECITABINE. [Suspect]
     Active Substance: CAPECITABINE
     Indication: COLON CANCER
     Route: 048
  13. FAMOTIDINE. [Concomitant]
     Active Substance: FAMOTIDINE

REACTIONS (1)
  - Myelosuppression [None]

NARRATIVE: CASE EVENT DATE: 20201029
